FAERS Safety Report 23611700 (Version 1)
Quarter: 2024Q1

REPORT INFORMATION
  Report Type: Report from Study
  Country: US (occurrence: US)
  Receive Date: 20240308
  Receipt Date: 20240308
  Transmission Date: 20240410
  Serious: Yes (Other)
  Sender: FDA-Public Use
  Company Number: US-ABBVIE-5664599

PATIENT
  Sex: Male

DRUGS (1)
  1. LUMIGAN [Suspect]
     Active Substance: BIMATOPROST
     Indication: Product used for unknown indication
     Dosage: 1 DROP ON EACH EYE?FORM STRENGTH: 0.1 MILLIGRAM/MILLILITERS
     Route: 047

REACTIONS (1)
  - Lymphoma [Not Recovered/Not Resolved]

NARRATIVE: CASE EVENT DATE: 20240101
